FAERS Safety Report 20913242 (Version 5)
Quarter: 2022Q3

REPORT INFORMATION
  Report Type: Report from Study
  Country: ES (occurrence: ES)
  Receive Date: 20220603
  Receipt Date: 20220725
  Transmission Date: 20221027
  Serious: Yes (Death, Other)
  Sender: FDA-Public Use
  Company Number: ES-BRISTOL-MYERS SQUIBB COMPANY-2022-049775

PATIENT
  Age: 65 Year
  Sex: Male
  Weight: 85.3 kg

DRUGS (24)
  1. IPILIMUMAB [Suspect]
     Active Substance: IPILIMUMAB
     Indication: Hepatocellular carcinoma
     Route: 042
     Dates: start: 20171214, end: 20220126
  2. CABOZANTINIB [Suspect]
     Active Substance: CABOZANTINIB
     Indication: Hepatocellular carcinoma
     Route: 048
     Dates: start: 20171214, end: 20211202
  3. ADVENTAN [Concomitant]
     Indication: Product used for unknown indication
     Route: 061
     Dates: start: 2016
  4. RETINOL [Concomitant]
     Active Substance: RETINOL
     Indication: Product used for unknown indication
     Route: 065
     Dates: start: 2016
  5. NUTRASONA [Concomitant]
     Indication: Product used for unknown indication
     Route: 061
     Dates: start: 20171227
  6. ACETAMINOPHEN [Concomitant]
     Active Substance: ACETAMINOPHEN
     Indication: Product used for unknown indication
     Route: 065
     Dates: start: 20180125
  7. LOPERAMIDA [LOPERAMIDE] [Concomitant]
     Indication: Product used for unknown indication
     Route: 065
     Dates: start: 20180221
  8. PIMECROLIMUS [Concomitant]
     Active Substance: PIMECROLIMUS
     Indication: Product used for unknown indication
     Route: 065
     Dates: start: 20180406
  9. HERBALS\PLANTAGO OVATA SEED [Concomitant]
     Active Substance: HERBALS\PLANTAGO OVATA SEED
     Indication: Product used for unknown indication
     Route: 065
     Dates: start: 20180406
  10. LEVOTHYROXINE [Concomitant]
     Active Substance: LEVOTHYROXINE
     Indication: Product used for unknown indication
     Route: 065
     Dates: start: 20180530
  11. OMEPRAZOLE [Concomitant]
     Active Substance: OMEPRAZOLE
     Indication: Product used for unknown indication
     Route: 065
     Dates: start: 20181128
  12. METAMIZOL [Concomitant]
     Active Substance: METAMIZOLE SODIUM
     Indication: Product used for unknown indication
     Route: 065
     Dates: start: 20191226
  13. PHYTONADIONE [Concomitant]
     Active Substance: PHYTONADIONE
     Indication: Product used for unknown indication
     Route: 065
     Dates: start: 20200515
  14. ULTRA LEVURA [SACCHAROMYCES BOULARDII] [Concomitant]
     Indication: Product used for unknown indication
     Route: 065
     Dates: start: 20201021
  15. CHOLECALCIFEROL [Concomitant]
     Active Substance: CHOLECALCIFEROL
     Indication: Product used for unknown indication
     Route: 065
     Dates: start: 20210324
  16. NYSTATIN [Concomitant]
     Active Substance: NYSTATIN
     Indication: Product used for unknown indication
     Dosage: 1 DF=10000 UI/L
     Route: 065
     Dates: start: 20210811
  17. CALCIUM\CHOLECALCIFEROL [Concomitant]
     Active Substance: CALCIUM\CHOLECALCIFEROL
     Indication: Product used for unknown indication
     Dosage: 1 DF- 2 TABLET
     Route: 065
     Dates: start: 20220420
  18. SULFAMETHOXAZOLE\TRIMETHOPRIM [Concomitant]
     Active Substance: SULFAMETHOXAZOLE\TRIMETHOPRIM
     Indication: Product used for unknown indication
     Dosage: 1 DF= 1 TABLET
     Route: 065
     Dates: start: 20220425
  19. PREDNISONE [Concomitant]
     Active Substance: PREDNISONE
     Indication: Product used for unknown indication
     Route: 065
     Dates: start: 20220509, end: 20220519
  20. PREDNISONE [Concomitant]
     Active Substance: PREDNISONE
     Route: 065
     Dates: start: 20220520, end: 20220527
  21. PREDNISONE [Concomitant]
     Active Substance: PREDNISONE
     Dosage: ONGOING
     Route: 065
     Dates: start: 20220528
  22. MYCOPHENOLATE MOFETIL [Concomitant]
     Active Substance: MYCOPHENOLATE MOFETIL
     Indication: Product used for unknown indication
     Route: 065
     Dates: start: 20220523
  23. VITAMIN K [Concomitant]
     Active Substance: PHYTONADIONE
     Indication: Product used for unknown indication
     Dosage: 1 DF- 1 UNIT
     Route: 065
     Dates: start: 20220527
  24. VITAMIN B COMPLEX PLUS [Concomitant]
     Indication: Product used for unknown indication
     Route: 065
     Dates: start: 20201118

REACTIONS (1)
  - Acute pulmonary oedema [Fatal]

NARRATIVE: CASE EVENT DATE: 20220529
